FAERS Safety Report 11220255 (Version 2)
Quarter: 2015Q3

REPORT INFORMATION
  Report Type: Report from Study
  Country: CA (occurrence: CA)
  Receive Date: 20150625
  Receipt Date: 20150710
  Transmission Date: 20151125
  Serious: Yes (Other)
  Sender: FDA-Public Use
  Company Number: PHHY2014CA118709

PATIENT
  Age: 41 Year
  Sex: Female

DRUGS (1)
  1. GILENYA [Suspect]
     Active Substance: FINGOLIMOD HYDROCHLORIDE
     Indication: RELAPSING-REMITTING MULTIPLE SCLEROSIS
     Dosage: 0.5 MG, QD
     Route: 048
     Dates: start: 20140620, end: 20140910

REACTIONS (11)
  - Multiple sclerosis relapse [Recovered/Resolved]
  - Balance disorder [Unknown]
  - Hypoaesthesia [Unknown]
  - Lymphocyte count decreased [Unknown]
  - Central nervous system lesion [Unknown]
  - Urinary hesitation [Unknown]
  - Lower respiratory tract infection [Unknown]
  - Tremor [Not Recovered/Not Resolved]
  - Blood cholesterol abnormal [Recovered/Resolved]
  - Muscular weakness [Unknown]
  - Urinary incontinence [Unknown]

NARRATIVE: CASE EVENT DATE: 201412
